FAERS Safety Report 6843880-2 (Version None)
Quarter: 2010Q3

REPORT INFORMATION
  Report Type: 
  Country: None (occurrence: None)
  Receive Date: 20100714
  Receipt Date: 20100714
  Transmission Date: 20110219
  Serious: Yes (Death)
  Sender: FDA-Public Use
  Company Number: None

PATIENT
  Age: 6 Year
  Sex: Female
  Weight: 19.4 kg

DRUGS (2)
  1. DIVALPROEX SODIUM [Suspect]
     Indication: CONVULSION
     Dosage: 250 MG 2 TIMES A DAY PO
     Route: 048
     Dates: start: 20090801, end: 20100701
  2. ZONISAMIDE [Suspect]
     Indication: CONVULSION
     Dosage: 75 MG 2 TIMES A DAY PO
     Route: 048
     Dates: start: 20090801, end: 20100701

REACTIONS (9)
  - DISSEMINATED INTRAVASCULAR COAGULATION [None]
  - GENERAL PHYSICAL HEALTH DETERIORATION [None]
  - HYPOTENSION [None]
  - IRRITABILITY [None]
  - MULTI-ORGAN FAILURE [None]
  - PANCREATITIS HAEMORRHAGIC [None]
  - RESPIRATORY FAILURE [None]
  - SEPTIC SHOCK [None]
  - VOMITING [None]
